FAERS Safety Report 12233221 (Version 1)
Quarter: 2016Q2

REPORT INFORMATION
  Report Type: Spontaneous
  Country: CN (occurrence: CN)
  Receive Date: 20160404
  Receipt Date: 20160404
  Transmission Date: 20160815
  Serious: Yes (Other)
  Sender: FDA-Public Use
  Company Number: CN-CIPLA LTD.-2016CN03108

PATIENT

DRUGS (8)
  1. LAMIVUDINE. [Suspect]
     Active Substance: LAMIVUDINE
     Indication: CHRONIC HEPATITIS B
     Dosage: UNK
     Route: 065
  2. ENTECAVIR. [Suspect]
     Active Substance: ENTECAVIR
     Indication: CHRONIC HEPATITIS B
     Dosage: UNK
     Route: 065
  3. TELBIVUDINE [Suspect]
     Active Substance: TELBIVUDINE
     Indication: CHRONIC HEPATITIS B
     Dosage: UNK
     Route: 065
  4. TELBIVUDINE [Suspect]
     Active Substance: TELBIVUDINE
     Dosage: 600 MG, QD
     Route: 065
  5. TENOFOVIR DISOPROXIL FUMARATE. [Suspect]
     Active Substance: TENOFOVIR DISOPROXIL FUMARATE
     Indication: CHRONIC HEPATITIS B
     Dosage: 300 MG, QD
     Route: 065
  6. ENTECAVIR. [Suspect]
     Active Substance: ENTECAVIR
     Dosage: 500 MG, QD
     Route: 065
  7. LAMIVUDINE. [Suspect]
     Active Substance: LAMIVUDINE
     Dosage: 100 MG, QD
     Route: 065
  8. ADEFOVIR DIPIVOXIL. [Suspect]
     Active Substance: ADEFOVIR DIPIVOXIL
     Indication: CHRONIC HEPATITIS B
     Dosage: UNK
     Route: 065

REACTIONS (2)
  - Treatment failure [Unknown]
  - Blood creatine phosphokinase increased [Unknown]
